FAERS Safety Report 17859490 (Version 1)
Quarter: 2020Q2

REPORT INFORMATION
  Report Type: Spontaneous
  Country: CN (occurrence: CN)
  Receive Date: 20200604
  Receipt Date: 20200604
  Transmission Date: 20200714
  Serious: Yes (Other)
  Sender: FDA-Public Use
  Company Number: CN-BAXTER-2020BAX011377

PATIENT
  Age: 74 Year
  Sex: Female
  Weight: 46 kg

DRUGS (12)
  1. VINDESINE SULFATE [Suspect]
     Active Substance: VINDESINE SULFATE
     Indication: DIFFUSE LARGE B-CELL LYMPHOMA
     Dosage: VINDESINE SULFATE + 0.9% SODIUM CHLORIDE, DAY 1
     Route: 041
     Dates: start: 20200515, end: 20200515
  2. AIDASHENG [Suspect]
     Active Substance: EPIRUBICIN HYDROCHLORIDE
     Dosage: DOSE RE-INTRODUCED, AIDASHENG + 0.9% SODIUM CHLORIDE
     Route: 041
     Dates: start: 202005
  3. AIDASHENG [Suspect]
     Active Substance: EPIRUBICIN HYDROCHLORIDE
     Indication: DIFFUSE LARGE B-CELL LYMPHOMA
     Dosage: AIDASHENG + 0.9% SODIUM CHLORIDE OF 100ML, DAY 1
     Route: 041
     Dates: start: 20200515, end: 20200515
  4. 0.9% SODIUM CHLORIDE INJECTION [Suspect]
     Active Substance: SODIUM CHLORIDE
     Indication: MEDICATION DILUTION
     Dosage: ENDOXAN OF 0.8G + 0.9% SODIUM CHLORIDE, DAY 1
     Route: 041
     Dates: start: 20200515, end: 20200515
  5. 0.9% SODIUM CHLORIDE INJECTION [Suspect]
     Active Substance: SODIUM CHLORIDE
     Dosage: VINDESINE SULFATE OF 2MG + 0.9% SODIUM CHLORIDE, DAY 1
     Route: 041
     Dates: start: 20200515, end: 20200515
  6. 0.9% SODIUM CHLORIDE INJECTION [Suspect]
     Active Substance: SODIUM CHLORIDE
     Dosage: AIDASHENG OF 80MG + 0.9% SODIUM CHLORIDE, DAY 1
     Route: 041
     Dates: start: 20200515, end: 20200515
  7. 0.9% SODIUM CHLORIDE INJECTION [Suspect]
     Active Substance: SODIUM CHLORIDE
     Dosage: DOSE RE-INTRODUCED, VINDESINE SULFATE + 0.9% SODIUM CHLORIDE
     Route: 041
     Dates: start: 202005
  8. 0.9% SODIUM CHLORIDE INJECTION [Suspect]
     Active Substance: SODIUM CHLORIDE
     Dosage: DOSE RE-INTRODUCED, ENDOXAN + 0.9% SODIUM CHLORIDE
     Route: 041
     Dates: start: 202005
  9. ENDOXAN [Suspect]
     Active Substance: CYCLOPHOSPHAMIDE
     Indication: DIFFUSE LARGE B-CELL LYMPHOMA
     Dosage: ENDOXAN + 0.9% SODIUM CHLORIDE OF 100ML, DAY 1
     Route: 041
     Dates: start: 20200515, end: 20200515
  10. ENDOXAN [Suspect]
     Active Substance: CYCLOPHOSPHAMIDE
     Dosage: DOSE RE-INTRODUCED, ENDOXAN+ 0.9% SODIUM CHLORIDE
     Route: 041
     Dates: start: 202005
  11. 0.9% SODIUM CHLORIDE INJECTION [Suspect]
     Active Substance: SODIUM CHLORIDE
     Dosage: DOSE RE-INTRODUCED, AIDASHENG + 0.9% SODIUM CHLORIDE
     Route: 041
     Dates: start: 202005
  12. VINDESINE SULFATE [Suspect]
     Active Substance: VINDESINE SULFATE
     Dosage: DOSE RE-INTRODUCED, VINDESINE SULFATE + 0.9% SODIUM CHLORIDE
     Route: 041
     Dates: start: 202005

REACTIONS (1)
  - Bone marrow failure [Recovering/Resolving]

NARRATIVE: CASE EVENT DATE: 20200520
